FAERS Safety Report 13368503 (Version 16)
Quarter: 2018Q4

REPORT INFORMATION
  Report Type: Report from Study
  Country: CA (occurrence: CA)
  Receive Date: 20170324
  Receipt Date: 20181130
  Transmission Date: 20190204
  Serious: Yes (Hospitalization, Other)
  Sender: FDA-Public Use
  Company Number: PHHY2017CA022855

PATIENT
  Age: 71 Year
  Sex: Female

DRUGS (3)
  1. SANDOSTATIN LAR DEPOT [Suspect]
     Active Substance: OCTREOTIDE ACETATE
     Indication: CARCINOID TUMOUR
     Dosage: 30 MG, QMO (EVERY 4 WEEKS)
     Route: 030
     Dates: start: 20170209
  2. METOPROLOL. [Suspect]
     Active Substance: METOPROLOL
     Indication: PRODUCT USED FOR UNKNOWN INDICATION
     Route: 048
  3. VALSARSTAD [Concomitant]
     Indication: PRODUCT USED FOR UNKNOWN INDICATION
     Dosage: UNK, QD (DAILY)
     Route: 065

REACTIONS (17)
  - Chest discomfort [Recovering/Resolving]
  - Stress [Unknown]
  - Dyspepsia [Unknown]
  - Oesophageal dilatation [Unknown]
  - Abdominal pain upper [Recovered/Resolved]
  - Gastrointestinal sounds abnormal [Unknown]
  - Anaemia [Unknown]
  - Headache [Unknown]
  - Drug ineffective [Unknown]
  - Arteriosclerosis coronary artery [Unknown]
  - Eructation [Unknown]
  - Chest pain [Unknown]
  - Muscle tightness [Unknown]
  - Abdominal discomfort [Unknown]
  - Haematochezia [Unknown]
  - Tooth disorder [Recovering/Resolving]
  - Alopecia [Unknown]

NARRATIVE: CASE EVENT DATE: 20170209
